FAERS Safety Report 16141329 (Version 1)
Quarter: 2019Q2

REPORT INFORMATION
  Report Type: Spontaneous
  Country: US (occurrence: US)
  Receive Date: 20190401
  Receipt Date: 20190401
  Transmission Date: 20190711
  Serious: No
  Sender: FDA-Public Use
  Company Number: US-PFIZER INC-2019136713

PATIENT
  Age: 56 Year
  Sex: Female

DRUGS (1)
  1. GABAPENTIN. [Suspect]
     Active Substance: GABAPENTIN
     Indication: PAIN
     Dosage: 800 MG, 3X/DAY
     Dates: start: 2017

REACTIONS (4)
  - Insomnia [Unknown]
  - Product use in unapproved indication [Unknown]
  - Burning sensation [Unknown]
  - Overdose [Unknown]

NARRATIVE: CASE EVENT DATE: 2017
